FAERS Safety Report 6845455-8 (Version None)
Quarter: 2010Q3

REPORT INFORMATION
  Report Type: 
  Country: None (occurrence: None)
  Receive Date: 20100715
  Receipt Date: 20071003
  Transmission Date: 20110219
  Serious: No
  Sender: FDA-Public Use
  Company Number: US-PFIZER INC-2007069243

PATIENT
  Sex: Female
  Weight: 54.5 kg

DRUGS (7)
  1. CHANTIX [Suspect]
     Indication: SMOKING CESSATION THERAPY
     Dates: end: 20070101
  2. LISINOPRIL [Concomitant]
  3. ATENOLOL [Concomitant]
  4. ASPIRIN [Concomitant]
  5. ACIPHEX [Concomitant]
  6. CRESTOR [Concomitant]
  7. ISOSORBIDE MONONITRATE [Concomitant]

REACTIONS (3)
  - ABNORMAL DREAMS [None]
  - AMNESIA [None]
  - NIGHTMARE [None]
